FAERS Safety Report 7939839-4 (Version None)
Quarter: 2011Q4

REPORT INFORMATION
  Report Type: 
  Country: None (occurrence: None)
  Receive Date: 20111125
  Receipt Date: 20111122
  Transmission Date: 20120403
  Serious: Yes (Death, Hospitalization)
  Sender: FDA-Public Use
  Company Number: PHHY2011DE93566

PATIENT
  Sex: Female
  Weight: 73 kg

DRUGS (3)
  1. ZOMETA [Suspect]
     Dosage: 4MG/5ML EVERY 3 WEEKS
     Route: 042
     Dates: start: 20110915
  2. ZOMETA [Suspect]
     Indication: PROPHYLAXIS
     Dosage: 4MG/5ML EVERY 3 WEEKS
     Route: 042
     Dates: start: 20110324
  3. FEMARA [Suspect]
     Indication: BREAST CANCER
     Dates: start: 20110519, end: 20110920

REACTIONS (11)
  - PHARYNGEAL OEDEMA [None]
  - NEOPLASM MALIGNANT [None]
  - METASTASES TO ABDOMINAL CAVITY [None]
  - LYMPHANGIOSIS CARCINOMATOSA [None]
  - NEOPLASM PROGRESSION [None]
  - FACE OEDEMA [None]
  - LOCALISED OEDEMA [None]
  - PAIN [None]
  - ACUTE RESPIRATORY FAILURE [None]
  - METASTASES TO THE RESPIRATORY SYSTEM [None]
  - METASTASES TO SKIN [None]
